FAERS Safety Report 13062041 (Version 1)
Quarter: 2016Q4

REPORT INFORMATION
  Report Type: Spontaneous
  Country: JP (occurrence: JP)
  Receive Date: 20161226
  Receipt Date: 20161226
  Transmission Date: 20170207
  Serious: Yes (Other)
  Sender: FDA-Public Use
  Company Number: JP-PFIZER INC-2015471482

PATIENT
  Age: 64 Year
  Sex: Female

DRUGS (9)
  1. REBAMIPIDE [Concomitant]
     Active Substance: REBAMIPIDE
     Dosage: 1 DF, 2X/DAY
     Route: 048
     Dates: start: 20150805, end: 20150818
  2. ETODOLAC. [Concomitant]
     Active Substance: ETODOLAC
     Dosage: 1 DF, 2X/DAY
     Route: 048
     Dates: start: 20150723, end: 20150907
  3. LYRICA [Suspect]
     Active Substance: PREGABALIN
     Dosage: 50 MG, 1X/DAY (25 MG, 2 TABLETS)
     Route: 048
     Dates: start: 20150826, end: 20150908
  4. LYRICA [Suspect]
     Active Substance: PREGABALIN
     Dosage: 25 MG, 1X/DAY
     Route: 048
     Dates: start: 20151021
  5. LIMAPROST ALFADEX [Concomitant]
     Active Substance: LIMAPROST
     Dosage: 1 DF, 3X/DAY
     Route: 048
     Dates: start: 20150723
  6. METHYCOBAL [Concomitant]
     Active Substance: METHYLCOBALAMIN
     Dosage: 1 DF, 3X/DAY
     Route: 048
     Dates: start: 20141111
  7. LYRICA [Suspect]
     Active Substance: PREGABALIN
     Dosage: 75 MG, 1X/DAY
     Route: 048
     Dates: start: 20150924, end: 20151020
  8. LYRICA [Suspect]
     Active Substance: PREGABALIN
     Dosage: 75 MG, 1X/DAY (25 MG, 3 TABLETS)
     Route: 048
     Dates: start: 20150909, end: 20150923
  9. CYMBALTA [Concomitant]
     Active Substance: DULOXETINE HYDROCHLORIDE
     Dosage: 1 DF, 1X/DAY
     Route: 048
     Dates: start: 20141104, end: 20151117

REACTIONS (2)
  - Dizziness [Unknown]
  - Arrhythmia [Recovered/Resolved]

NARRATIVE: CASE EVENT DATE: 201509
